FAERS Safety Report 8063067-8 (Version None)
Quarter: 2012Q1

REPORT INFORMATION
  Report Type: 
  Country: None (occurrence: None)
  Receive Date: 20120123
  Receipt Date: 20120109
  Transmission Date: 20120608
  Serious: Yes (Death)
  Sender: FDA-Public Use
  Company Number: US-MYLANLABS-2012S1000878

PATIENT
  Age: 29 Year
  Sex: Female

DRUGS (4)
  1. AZATHIOPRINE [Suspect]
     Indication: CROHN'S DISEASE
     Route: 065
  2. MERCAPTOPURINE [Suspect]
     Indication: CROHN'S DISEASE
     Route: 065
  3. INFLIXIMAB [Suspect]
     Indication: CROHN'S DISEASE
     Route: 065
  4. PREDNISONE [Suspect]
     Indication: CROHN'S DISEASE
     Route: 065

REACTIONS (1)
  - PNEUMONIA LEGIONELLA [None]
